FAERS Safety Report 7530652-9 (Version None)
Quarter: 2011Q2

REPORT INFORMATION
  Report Type: 
  Country: None (occurrence: None)
  Receive Date: 20110607
  Receipt Date: 20110602
  Transmission Date: 20111010
  Serious: Yes (Death, Hospitalization, Other)
  Sender: FDA-Public Use
  Company Number: MX-ABBOTT-09P-107-0573610-00

PATIENT
  Age: 58 Year
  Sex: Male

DRUGS (1)
  1. HUMIRA [Suspect]
     Indication: PSORIASIS
     Route: 058
     Dates: start: 20080401, end: 20090401

REACTIONS (5)
  - SIALOMETAPLASIA [None]
  - ORAL CANDIDIASIS [None]
  - NERVOUS SYSTEM DISORDER [None]
  - CEREBROVASCULAR ACCIDENT [None]
  - PHARYNGEAL NEOPLASM [None]
